FAERS Safety Report 7422622-6 (Version None)
Quarter: 2011Q2

REPORT INFORMATION
  Report Type: 
  Country: None (occurrence: None)
  Receive Date: 20110407
  Receipt Date: 20110328
  Transmission Date: 20111010
  Serious: Yes (Hospitalization)
  Sender: FDA-Public Use
  Company Number: UTC-005959

PATIENT
  Age: 36 Year
  Sex: Female
  Weight: 81.36 kg

DRUGS (3)
  1. TYVASO [Suspect]
     Indication: PULMONARY ARTERIAL HYPERTENSION
     Dosage: 72 MCG (18 MCG,4 IN 1 D), INHALATION
     Route: 055
     Dates: start: 20091208, end: 20110217
  2. TRACLEER [Concomitant]
  3. REVATIO [Concomitant]

REACTIONS (4)
  - HEADACHE [None]
  - CHEST PAIN [None]
  - COUGH [None]
  - THROAT IRRITATION [None]
